FAERS Safety Report 21710854 (Version 1)
Quarter: 2022Q4

REPORT INFORMATION
  Report Type: Spontaneous
  Country: SE (occurrence: SE)
  Receive Date: 20221212
  Receipt Date: 20221212
  Transmission Date: 20230113
  Serious: Yes (Hospitalization)
  Sender: FDA-Public Use
  Company Number: None

PATIENT
  Age: 56 Year
  Sex: Male
  Weight: 87 kg

DRUGS (20)
  1. Loratadin ratiopharm 10 mg Tablett [Concomitant]
     Indication: Product used for unknown indication
  2. Simvastatin Bluefish 40 mg Filmdragerad tablett [Concomitant]
     Indication: Product used for unknown indication
  3. TACROLIMUS [Concomitant]
     Active Substance: TACROLIMUS
     Indication: Product used for unknown indication
  4. Aranesp 80 mikrogram Injektionsv?tska, l?sning i f?rfylld spruta [Concomitant]
     Indication: Product used for unknown indication
     Dosage: 80 MIKROGRAM 1 SPRUTA PER VECKA
     Route: 058
     Dates: start: 20200731
  5. Resonium  Pulver till oral/rektal suspension [Concomitant]
     Indication: Product used for unknown indication
     Dosage: 15 G VID BEHOV
     Route: 048
     Dates: start: 20151021
  6. CYANOCOBALAMIN [Concomitant]
     Active Substance: CYANOCOBALAMIN
     Indication: Product used for unknown indication
     Dosage: 1 MG 1 TABLETT 1 G?NG DAGLIGEN
     Route: 048
     Dates: start: 20200727
  7. Natriumbikarbonat Evolan 1 g Tablett [Concomitant]
     Indication: Product used for unknown indication
     Dosage: 1 G 3 TABLETTER 4 G?NGER DAGLIGEN
     Route: 048
     Dates: start: 20161212
  8. Omeprazol Pensa 20 mg Enterokapsel, h?rd [Concomitant]
     Indication: Product used for unknown indication
     Dosage: 20 MG 1 TABLETT TILL NATTEN
     Route: 048
     Dates: start: 20170709
  9. Alfacalcidol Orifarm 0,25 mikrogram Kapsel, mjuk [Concomitant]
     Indication: Product used for unknown indication
     Dosage: 0,25 MIKROGRAM 1 KAPSEL 1 G?NG DAGLIGEN
     Route: 048
     Dates: start: 20200727
  10. Amlodipin Accord 5 mg Tablett [Concomitant]
     Indication: Product used for unknown indication
     Dosage: 5 MG 1 TABLETT 2 G?NGER DAGLIGEN
     Route: 048
     Dates: start: 20161212
  11. Prednisolon Pfizer 5 mg Tablett [Concomitant]
     Indication: Product used for unknown indication
     Dosage: 5 MG 1 TABLETT 1 G?NG DAGLIGEN
     Route: 048
     Dates: start: 20161212
  12. Furosemid Hexal 40 mg Tablett [Concomitant]
     Indication: Product used for unknown indication
     Dosage: 40 MG 1 TABLETT VID BEHOV
     Route: 048
     Dates: start: 20200804
  13. Mycophenolate mofetil Sandoz 500 mg Filmdragerad tablett [Concomitant]
     Indication: Product used for unknown indication
     Dosage: 500 MG 2 TABLETTER 2 G?NGER DAGLIGEN
     Route: 048
     Dates: start: 20161212
  14. folic acid hydrate [Concomitant]
     Indication: Product used for unknown indication
     Dosage: 1 MG 1 TABLETT 1 G?NG DAGLIGEN
     Route: 048
     Dates: start: 20140116
  15. ASPIRIN [Concomitant]
     Active Substance: ASPIRIN
     Indication: Product used for unknown indication
     Dosage: 75 MG 1 TABLETT 1 G?NG DAGLIGEN
     Route: 048
     Dates: start: 20150521
  16. ACETAMINOPHEN [Concomitant]
     Active Substance: ACETAMINOPHEN
     Indication: Product used for unknown indication
     Dosage: 500 MG 2 TABLETTER VID BEHOV
     Route: 048
     Dates: start: 20200727
  17. OCTAGAM IMMUNE GLOBULIN (HUMAN) [Suspect]
     Active Substance: HUMAN IMMUNOGLOBULIN G
     Indication: Kidney transplant rejection
     Dosage: 900 ML OVER 2 D, 2 TREATMENT CYCLES
     Route: 042
     Dates: start: 20210421, end: 20210522
  18. Enalapril Sandoz 5 mg Tablett [Concomitant]
     Indication: Product used for unknown indication
     Dosage: 5 MG 1 TABLETT 2 G?NGER DAGLIGEN
     Route: 048
     Dates: start: 20190709
  19. METOPROLOL [Concomitant]
     Active Substance: METOPROLOL
     Indication: Product used for unknown indication
     Dosage: 50 MG 1 TABLETT 1 G?NG DAGLIGEN
     Route: 048
     Dates: start: 20181119
  20. Mometasone Teva 50 mikrogram/dos N?sspray, suspension [Concomitant]
     Indication: Product used for unknown indication
     Dosage: 50 MIKROGRAM/DOS 2 DOSAR VID BEHOV
     Route: 045
     Dates: start: 20180618

REACTIONS (2)
  - Marrow hyperplasia [Recovered/Resolved]
  - Refractory anaemia with ringed sideroblasts [Recovered/Resolved]

NARRATIVE: CASE EVENT DATE: 20210506
